FAERS Safety Report 9052632 (Version 3)
Quarter: 2013Q3

REPORT INFORMATION
  Report Type: Spontaneous
  Country: US (occurrence: US)
  Receive Date: 20130207
  Receipt Date: 20130701
  Transmission Date: 20140515
  Serious: Yes (Hospitalization, Other)
  Sender: FDA-Public Use
  Company Number: US-UCBSA-003309

PATIENT
  Age: 49 Year
  Sex: Male

DRUGS (16)
  1. VIMPAT [Suspect]
     Indication: COMPLEX PARTIAL SEIZURES
     Dosage: FOR 2 WEEKS
     Route: 048
     Dates: start: 20090609
  2. VIMPAT [Suspect]
     Indication: COMPLEX PARTIAL SEIZURES
     Dosage: FOR 2 WEEKS
     Route: 048
  3. VIMPAT [Suspect]
     Indication: COMPLEX PARTIAL SEIZURES
     Dosage: FOR 2 WEEKS
     Route: 048
  4. VIMPAT [Suspect]
     Indication: COMPLEX PARTIAL SEIZURES
     Dosage: FOR 2 WEEKS
     Route: 048
  5. VIMPAT [Suspect]
     Indication: COMPLEX PARTIAL SEIZURES
     Route: 048
  6. LAMOTRIGINE [Suspect]
     Indication: COMPLEX PARTIAL SEIZURES
     Route: 048
     Dates: start: 20091105
  7. LAMOTRIGINE [Suspect]
     Indication: COMPLEX PARTIAL SEIZURES
     Route: 048
     Dates: end: 20091105
  8. TEGRETOL [Suspect]
     Indication: COMPLEX PARTIAL SEIZURES
     Route: 048
  9. LEVETIRACETAM [Concomitant]
     Indication: EPILEPSY
  10. PHENYTOIN [Concomitant]
     Indication: CONVULSION
  11. PHENYTOIN [Concomitant]
     Indication: CONVULSION
  12. CLONAZEPAM [Concomitant]
     Indication: EPILEPSY
  13. ATORVASTATIN [Concomitant]
     Indication: HYPERCHOLESTEROLAEMIA
  14. TRIAMTERENE [Concomitant]
     Indication: HYPERTENSION
  15. VALSARTAN [Concomitant]
     Indication: HYPERTENSION
  16. DEPAKOTE [Concomitant]
     Indication: COMPLEX PARTIAL SEIZURES
     Route: 048

REACTIONS (5)
  - Ventricular tachycardia [Recovered/Resolved]
  - Medical device implantation [Recovered/Resolved]
  - Electrocardiogram QRS complex prolonged [Recovering/Resolving]
  - Atrioventricular block first degree [Recovered/Resolved]
  - Bundle branch block left [Recovered/Resolved]
